FAERS Safety Report 5407155-0 (Version None)
Quarter: 2007Q3

REPORT INFORMATION
  Report Type: 
  Country: None (occurrence: None)
  Receive Date: 20070803
  Receipt Date: 20070803
  Transmission Date: 20080115
  Serious: Yes (Hospitalization)
  Sender: FDA-Public Use
  Company Number: None

PATIENT
  Sex: Male
  Weight: 107.3 kg

DRUGS (4)
  1. FLUOROURACIL [Suspect]
     Dosage: 13160 MG
     Dates: end: 20070724
  2. BEVACIZUMAB (RHUMAB VEGF) [Suspect]
     Dosage: 1090 MG
     Dates: end: 20070723
  3. CAMPTOSAR [Suspect]
     Dosage: 846 MG
     Dates: end: 20070723
  4. LEUCOVORIN CALCIUM [Suspect]
     Dosage: 1880 MG
     Dates: end: 20070723

REACTIONS (4)
  - BODY TEMPERATURE DECREASED [None]
  - FEBRILE NEUTROPENIA [None]
  - HYPOCALCAEMIA [None]
  - HYPONATRAEMIA [None]
